FAERS Safety Report 8687915 (Version 2)
Quarter: 2016Q1

REPORT INFORMATION
  Report Type: Spontaneous
  Country: JP (occurrence: JP)
  Receive Date: 20120727
  Receipt Date: 20160224
  Transmission Date: 20160526
  Serious: Yes (Life-Threatening, Hospitalization)
  Sender: FDA-Public Use
  Company Number: JP-ASTRAZENECA-2012SE51849

PATIENT
  Age: 93 Year
  Sex: Female
  Weight: 48 kg

DRUGS (2)
  1. SEROQUEL [Suspect]
     Active Substance: QUETIAPINE FUMARATE
     Indication: DELIRIUM
     Route: 048
  2. SEROQUEL [Suspect]
     Active Substance: QUETIAPINE FUMARATE
     Indication: DELIRIUM
     Dosage: 2X 25 MG WITH ONE HOUR INTERVAL
     Route: 048

REACTIONS (8)
  - Altered state of consciousness [Recovered/Resolved]
  - Bradycardia [Recovered/Resolved]
  - Respiratory failure [Recovered/Resolved]
  - Ventricular extrasystoles [Recovered/Resolved]
  - Off label use [Unknown]
  - Drug titration error [Unknown]
  - Hypotension [Recovered/Resolved]
  - Product use issue [Unknown]
